FAERS Safety Report 6150325-7 (Version None)
Quarter: 2009Q2

REPORT INFORMATION
  Report Type: 
  Country: None (occurrence: None)
  Receive Date: 20090407
  Receipt Date: 20090324
  Transmission Date: 20091009
  Serious: Yes (Other)
  Sender: FDA-Public Use
  Company Number: B0568213A

PATIENT
  Age: 26 Year
  Sex: Female

DRUGS (2)
  1. DIGOXIN [Suspect]
     Indication: TACHYCARDIA FOETAL
  2. FLECAINIDE ACETATE [Suspect]
     Indication: TACHYCARDIA FOETAL
     Dosage: ORAL
     Route: 048

REACTIONS (5)
  - CAESAREAN SECTION [None]
  - DRUG EXPOSURE DURING PREGNANCY [None]
  - PRE-ECLAMPSIA [None]
  - PREMATURE LABOUR [None]
  - PREMATURE RUPTURE OF MEMBRANES [None]
